FAERS Safety Report 14580437 (Version 1)
Quarter: 2018Q1

REPORT INFORMATION
  Report Type: Report from Study
  Country: None (occurrence: US)
  Receive Date: 20180228
  Receipt Date: 20180228
  Transmission Date: 20180509
  Serious: Yes (Other)
  Sender: FDA-Public Use
  Company Number: US-ABBVIE-17K-163-2095861-00

PATIENT
  Age: 67 Year
  Sex: Female

DRUGS (1)
  1. HUMIRA [Suspect]
     Active Substance: ADALIMUMAB
     Indication: COLITIS ULCERATIVE
     Route: 058

REACTIONS (10)
  - Syncope [Unknown]
  - Crohn^s disease [Unknown]
  - Asthenia [Unknown]
  - Dizziness [Unknown]
  - Colitis ulcerative [Unknown]
  - Influenza [Unknown]
  - Transfusion [Unknown]
  - Osteoporosis [Unknown]
  - Colitis ulcerative [Unknown]
  - Flatulence [Unknown]

NARRATIVE: CASE EVENT DATE: 201610
